FAERS Safety Report 17508207 (Version 1)
Quarter: 2020Q1

REPORT INFORMATION
  Report Type: Spontaneous
  Country: US (occurrence: US)
  Receive Date: 20200306
  Receipt Date: 20200306
  Transmission Date: 20200409
  Serious: Yes (Other)
  Sender: FDA-Public Use
  Company Number: US-BAUSCH-BL-2020-006440

PATIENT
  Age: 69 Year
  Sex: Male

DRUGS (3)
  1. NEOMYCIN POLYMYXIN B SULFATES AND DEXAMETHASONE OPHTHALMIC OINTMENT [Suspect]
     Active Substance: DEXAMETHASONE\NEOMYCIN\POLYMYXIN B SULFATE
     Indication: CORNEAL EROSION
     Route: 047
  2. DEXAMETHASONE SODIUM PHOSPHATE OPHTHALMIC SOLUTION USP 0.1% [Suspect]
     Active Substance: DEXAMETHASONE SODIUM PHOSPHATE
     Indication: CORNEAL EROSION
     Route: 047
  3. LOTEMAX [Suspect]
     Active Substance: LOTEPREDNOL ETABONATE
     Indication: CORNEAL EROSION
     Route: 047

REACTIONS (1)
  - Drug ineffective [Unknown]
